FAERS Safety Report 6819240-7 (Version None)
Quarter: 2010Q3

REPORT INFORMATION
  Report Type: 
  Country: None (occurrence: None)
  Receive Date: 20100707
  Receipt Date: 20100630
  Transmission Date: 20110219
  Serious: Yes (Death)
  Sender: FDA-Public Use
  Company Number: DE-CELGENEUS-062-50794-10070031

PATIENT
  Age: 82 Year
  Sex: Male

DRUGS (5)
  1. VIDAZA [Suspect]
     Route: 058
     Dates: start: 20091201, end: 20100401
  2. PLATELETS, CONCENTRATED [Concomitant]
     Indication: PRODUCT USED FOR UNKNOWN INDICATION
     Route: 051
  3. RED BLOOD CELLS [Concomitant]
     Indication: PRODUCT USED FOR UNKNOWN INDICATION
     Route: 051
  4. ANTIBIOTICS [Concomitant]
     Indication: PRODUCT USED FOR UNKNOWN INDICATION
     Route: 065
  5. ALLOPURINOL [Concomitant]
     Indication: PRODUCT USED FOR UNKNOWN INDICATION
     Route: 065

REACTIONS (5)
  - DEATH [None]
  - INJECTION SITE PAIN [None]
  - NAUSEA [None]
  - THROMBOCYTOPENIA [None]
  - VOMITING [None]
